FAERS Safety Report 7411247-4 (Version None)
Quarter: 2011Q2

REPORT INFORMATION
  Report Type: 
  Country: None (occurrence: None)
  Receive Date: 20110413
  Receipt Date: 20100504
  Transmission Date: 20111010
  Serious: Yes (Hospitalization)
  Sender: FDA-Public Use
  Company Number: US-BRISTOL-MYERS SQUIBB COMPANY-15076201

PATIENT
  Age: 63 Year
  Sex: Male

DRUGS (10)
  1. STEROIDS [Concomitant]
     Indication: PREMEDICATION
  2. FAMOTIDINE [Concomitant]
     Indication: PREMEDICATION
     Dosage: ROUTE IVPB
     Route: 042
  3. EPINEPHRINE [Concomitant]
     Route: 042
  4. ALBUTEROL [Concomitant]
     Indication: PREMEDICATION
     Dosage: NEBULIZER
  5. DEXAMETHASONE [Concomitant]
     Indication: PREMEDICATION
     Dosage: IVPB.
     Route: 042
  6. ERBITUX [Suspect]
     Indication: HEAD AND NECK CANCER
     Dosage: ORDERED 400MG/M2 LOADING DOSE*BSA OF 2.11=844MG; THEN 250 MG/M2*BSA 2.11=528MG/WK (9.7 ML).
     Route: 042
     Dates: start: 20100330
  7. BENADRYL [Concomitant]
     Indication: PREMEDICATION
  8. METHYLPREDNISOLONE ACETATE [Concomitant]
     Indication: PREMEDICATION
     Dosage: ROUTE-IVP.
     Route: 042
  9. DIPHENHYDRAMINE [Concomitant]
     Indication: PREMEDICATION
     Dosage: ROUTE IVPB
     Route: 042
  10. RADIOTHERAPY [Concomitant]

REACTIONS (1)
  - HYPERSENSITIVITY [None]
